FAERS Safety Report 13377307 (Version 2)
Quarter: 2017Q2

REPORT INFORMATION
  Report Type: Spontaneous
  Country: IT (occurrence: None)
  Receive Date: 20170327
  Receipt Date: 20170403
  Transmission Date: 20170830
  Serious: Yes (Hospitalization)
  Sender: FDA-Public Use
  Company Number: IT2017K1715SPO

PATIENT
  Age: 45 Year
  Sex: Male

DRUGS (3)
  1. DILTIAZEM TABLET [Suspect]
     Active Substance: DILTIAZEM
     Indication: DRUG USE DISORDER
     Route: 048
  2. LANSOPRAZOLE GENERIC (LANSOPRAZOLE) UNKNOWN [Suspect]
     Active Substance: LANSOPRAZOLE
     Indication: DRUG USE DISORDER
     Route: 048
  3. ETHYLIC ALCOHOL [Concomitant]

REACTIONS (3)
  - Drug use disorder [None]
  - Sopor [None]
  - Nausea [None]

NARRATIVE: CASE EVENT DATE: 20160906
